FAERS Safety Report 25384761 (Version 1)
Quarter: 2025Q2

REPORT INFORMATION
  Report Type: Spontaneous
  Country: CA (occurrence: CA)
  Receive Date: 20250602
  Receipt Date: 20250602
  Transmission Date: 20250716
  Serious: Yes (Other)
  Sender: ROCHE
  Company Number: CA-ROCHE-10000295538

PATIENT
  Age: 29 Year
  Sex: Male

DRUGS (8)
  1. TOCILIZUMAB [Suspect]
     Active Substance: TOCILIZUMAB
     Indication: Familial haemophagocytic lymphohistiocytosis
     Route: 065
  2. ANAKINRA [Suspect]
     Active Substance: ANAKINRA
     Indication: Familial haemophagocytic lymphohistiocytosis
     Route: 065
  3. CYCLOSPORINE [Suspect]
     Active Substance: CYCLOSPORINE
     Indication: Familial haemophagocytic lymphohistiocytosis
     Route: 065
  4. DEXAMETHASONE [Suspect]
     Active Substance: DEXAMETHASONE
     Indication: Familial haemophagocytic lymphohistiocytosis
     Route: 065
  5. ELTROMBOPAG [Suspect]
     Active Substance: ELTROMBOPAG
     Indication: Familial haemophagocytic lymphohistiocytosis
     Route: 065
  6. ETOPOSIDE [Suspect]
     Active Substance: ETOPOSIDE
     Indication: Familial haemophagocytic lymphohistiocytosis
     Route: 065
  7. HUMAN IMMUNOGLOBULIN G [Suspect]
     Active Substance: HUMAN IMMUNOGLOBULIN G
     Indication: Familial haemophagocytic lymphohistiocytosis
     Route: 065
  8. PREDNISONE [Concomitant]
     Active Substance: PREDNISONE
     Indication: Product used for unknown indication

REACTIONS (10)
  - Disease progression [Unknown]
  - Haemophagocytic lymphohistiocytosis [Unknown]
  - Hyperferritinaemia [Unknown]
  - Hypofibrinogenaemia [Unknown]
  - Lymphadenopathy [Unknown]
  - Pancytopenia [Unknown]
  - Off label use [Unknown]
  - Pyrexia [Unknown]
  - Splenomegaly [Unknown]
  - Therapy non-responder [Unknown]
